FAERS Safety Report 11503049 (Version 1)
Quarter: 2015Q3

REPORT INFORMATION
  Report Type: Spontaneous
  Country: US (occurrence: US)
  Receive Date: 20150914
  Receipt Date: 20150914
  Transmission Date: 20151125
  Serious: No
  Sender: FDA-Public Use
  Company Number: US-ASTELLAS-2015US023920

PATIENT
  Sex: Male

DRUGS (2)
  1. TRIAZOLAM. [Interacting]
     Active Substance: TRIAZOLAM
     Indication: SLEEP DISORDER
     Dosage: UNK, UNKNOWN FREQ.
     Route: 065
  2. XTANDI [Suspect]
     Active Substance: ENZALUTAMIDE
     Indication: HORMONE-REFRACTORY PROSTATE CANCER
     Dosage: 160 MG (4 CAPSULES), ONCE DAILY
     Route: 048

REACTIONS (4)
  - Fatigue [Unknown]
  - Drug interaction [Unknown]
  - Insomnia [Unknown]
  - Frustration [Unknown]
